FAERS Safety Report 18460619 (Version 1)
Quarter: 2020Q4

REPORT INFORMATION
  Report Type: Spontaneous
  Country: DK (occurrence: DK)
  Receive Date: 20201104
  Receipt Date: 20201104
  Transmission Date: 20210114
  Serious: Yes (Hospitalization)
  Sender: FDA-Public Use
  Company Number: DK-009507513-2010DNK010503

PATIENT
  Age: 77 Year
  Sex: Male
  Weight: 84 kg

DRUGS (3)
  1. NOXAFIL [Suspect]
     Active Substance: POSACONAZOLE
     Indication: ANTIFUNGAL PROPHYLAXIS
     Dosage: STRENGTH: 18 MG/ML
     Route: 042
     Dates: start: 20200922, end: 20200923
  2. NOXAFIL [Suspect]
     Active Substance: POSACONAZOLE
     Dosage: STRENGTH: 18 MG/ML
     Route: 042
     Dates: start: 20200923, end: 20201004
  3. NOXAFIL [Suspect]
     Active Substance: POSACONAZOLE
     Indication: ANTIFUNGAL PROPHYLAXIS
     Dosage: STRENGTH: UNKNOWN
     Route: 048
     Dates: start: 20201004, end: 20201007

REACTIONS (3)
  - Drug-induced liver injury [Not Recovered/Not Resolved]
  - Faeces discoloured [Not Recovered/Not Resolved]
  - Hyperbilirubinaemia [Not Recovered/Not Resolved]

NARRATIVE: CASE EVENT DATE: 202009
